FAERS Safety Report 7867552-0 (Version None)
Quarter: 2011Q4

REPORT INFORMATION
  Report Type: 
  Country: None (occurrence: None)
  Receive Date: 20111028
  Receipt Date: 20111021
  Transmission Date: 20120403
  Serious: Yes (Other)
  Sender: FDA-Public Use
  Company Number: PHHY2011CA93582

PATIENT
  Sex: Female

DRUGS (4)
  1. GILENYA [Suspect]
     Indication: RELAPSING-REMITTING MULTIPLE SCLEROSIS
     Dosage: 0.5 MG, QD
     Route: 048
     Dates: start: 20110810, end: 20111021
  2. SYNTHROID [Concomitant]
  3. VENLAFAXINE [Concomitant]
  4. ORTHO TRI-CYCLEN [Concomitant]

REACTIONS (4)
  - ASTHMA [None]
  - APHONIA [None]
  - COUGH [None]
  - DYSPNOEA [None]
